FAERS Safety Report 6068222-4 (Version None)
Quarter: 2009Q1

REPORT INFORMATION
  Report Type: 
  Country: None (occurrence: None)
  Receive Date: 20090206
  Receipt Date: 20090130
  Transmission Date: 20090719
  Serious: Yes (Other)
  Sender: FDA-Public Use
  Company Number: AT-ASTRAZENECA-2008PK01631

PATIENT
  Sex: Male
  Weight: 84 kg

DRUGS (1)
  1. CASODEX [Suspect]
     Indication: PROSTATE CANCER
     Route: 048
     Dates: start: 20080124, end: 20080702

REACTIONS (5)
  - CHEST PAIN [None]
  - DISTURBANCE IN ATTENTION [None]
  - HEPATIC ENZYME ABNORMAL [None]
  - MUSCULOSKELETAL STIFFNESS [None]
  - NAUSEA [None]
